FAERS Safety Report 5531439-9 (Version None)
Quarter: 2007Q4

REPORT INFORMATION
  Report Type: 
  Country: None (occurrence: None)
  Receive Date: 20071113
  Receipt Date: 20071113
  Transmission Date: 20080405
  Serious: Yes (Other)
  Sender: FDA-Public Use
  Company Number: 230003M07IRL

PATIENT

DRUGS (1)
  1. REBIF [Suspect]
     Dosage: 44

REACTIONS (1)
  - PORPHYRIA [None]
